FAERS Safety Report 5101944-8 (Version None)
Quarter: 2006Q3

REPORT INFORMATION
  Report Type: 
  Country: None (occurrence: None)
  Receive Date: 20060907
  Receipt Date: 20060818
  Transmission Date: 20061208
  Serious: Yes (Hospitalization, Other)
  Sender: FDA-Public Use
  Company Number: 2006105593

PATIENT
  Age: 62 Year
  Sex: Male
  Weight: 88.905 kg

DRUGS (2)
  1. CELEBREX [Suspect]
     Indication: DRUG USE FOR UNKNOWN INDICATION
  2. IBUPROFEN [Concomitant]

REACTIONS (2)
  - MYOCARDIAL INFARCTION [None]
  - VENOUS OCCLUSION [None]
